FAERS Safety Report 6026798-7 (Version None)
Quarter: 2009Q1

REPORT INFORMATION
  Report Type: 
  Country: None (occurrence: None)
  Receive Date: 20090105
  Receipt Date: 20081218
  Transmission Date: 20090719
  Serious: No
  Sender: FDA-Public Use
  Company Number: US-BAYER-200840422NA

PATIENT
  Age: 80 Year
  Sex: Male

DRUGS (2)
  1. LEVITRA [Suspect]
     Indication: ERECTILE DYSFUNCTION
     Dosage: UNIT DOSE: 20 MG
     Route: 048
     Dates: start: 20070101
  2. LEVITRA [Suspect]
     Dosage: UNIT DOSE: 20 MG

REACTIONS (1)
  - ERECTILE DYSFUNCTION [None]
